FAERS Safety Report 8558488-0 (Version None)
Quarter: 2012Q3

REPORT INFORMATION
  Report Type: 
  Country: None (occurrence: None)
  Receive Date: 20120801
  Receipt Date: 20120726
  Transmission Date: 20120928
  Serious: Yes (Hospitalization)
  Sender: FDA-Public Use
  Company Number: AU-INCYTE CORPORATION-2012IN001252

PATIENT
  Sex: Male
  Weight: 75.5 kg

DRUGS (6)
  1. INCB018424 (RUXOLITINIB) [Suspect]
     Dosage: 5 MG, QD
     Route: 048
  2. ALLOPURINOL [Concomitant]
  3. INDOMETHACIN [Concomitant]
  4. FOLIC ACID [Concomitant]
  5. ACETAMINOPHEN [Concomitant]
     Dosage: 1 G, PRN
  6. INCB018424 (RUXOLITINIB) [Suspect]
     Indication: MYELOFIBROSIS
     Dosage: NOT SPECIFIED
     Route: 048

REACTIONS (10)
  - WHITE BLOOD CELL COUNT INCREASED [None]
  - MEAN CELL VOLUME INCREASED [None]
  - PLATELET COUNT DECREASED [None]
  - CARDIAC FAILURE [None]
  - HAEMOGLOBIN DECREASED [None]
  - HAEMATOCRIT DECREASED [None]
  - NEUTROPHIL COUNT INCREASED [None]
  - DISEASE PROGRESSION [None]
  - CARDIOMYOPATHY [None]
  - MYELOFIBROSIS [None]
